FAERS Safety Report 6270636-4 (Version None)
Quarter: 2009Q3

REPORT INFORMATION
  Report Type: 
  Country: None (occurrence: None)
  Receive Date: 20090714
  Receipt Date: 20090629
  Transmission Date: 20100115
  Serious: Yes (Other)
  Sender: FDA-Public Use
  Company Number: ADE2009-0709

PATIENT
  Age: 56 Year
  Sex: Male

DRUGS (6)
  1. SIMVASTATIN [Suspect]
     Dosage: 10MG - DAILY - ORAL
     Route: 048
     Dates: start: 20071207, end: 20080201
  2. SILDENAFIL CITRATE [Suspect]
     Dosage: 100MG - UNK - ORAL
     Route: 048
     Dates: start: 20010307
  3. TROSPIUM [Concomitant]
  4. ASPIRIN [Concomitant]
  5. EZETIMIBE [Suspect]
     Dosage: 10MG DAO;UPRA;
     Route: 048
     Dates: start: 20080605, end: 20090107
  6. PRAVASTATIN [Suspect]
     Dosage: 10MG DAILY ORAL
     Route: 048
     Dates: start: 20080201, end: 20080305

REACTIONS (2)
  - DRUG INEFFECTIVE [None]
  - ERECTILE DYSFUNCTION [None]
